FAERS Safety Report 8314269-4 (Version None)
Quarter: 2012Q1

REPORT INFORMATION
  Report Type: 
  Country: None (occurrence: None)
  Receive Date: 20120315
  Receipt Date: 20110527
  Transmission Date: 20120608
  Serious: No
  Sender: FDA-Public Use
  Company Number: PHHY2011US46968

PATIENT
  Age: 50 Year
  Sex: Female

DRUGS (8)
  1. BACLOFEN [Concomitant]
  2. CITALOPRAM HYDROBROMIDE [Concomitant]
  3. ADVAIR HFA [Concomitant]
  4. SPIRIVA [Concomitant]
  5. PREDNISONE TAB [Concomitant]
  6. ZOLPIDEM [Concomitant]
  7. PROAIR (FLUTICASONE PROPIONATE) [Concomitant]
  8. GILENYA [Suspect]
     Indication: MULTIPLE SCLEROSIS
     Dosage: 0.5 MG, DAILY, ORAL
     Route: 048
     Dates: start: 20110524, end: 20110527

REACTIONS (2)
  - DRY MOUTH [None]
  - DYSGEUSIA [None]
